FAERS Safety Report 9283583 (Version 1)
Quarter: 2013Q2

REPORT INFORMATION
  Report Type: Spontaneous
  Country: US (occurrence: None)
  Receive Date: 20130425
  Receipt Date: 20130425
  Transmission Date: 20140414
  Serious: Yes (Other)
  Sender: FDA-Public Use
  Company Number: 2013035517

PATIENT
  Age: 63 Year
  Sex: Female

DRUGS (1)
  1. HIZENTRA (IMMUNOGLOBULIN HUMAN NORMAL) [Suspect]
     Indication: IMMUNODEFICIENCY COMMON VARIABLE
     Route: 058
     Dates: start: 20120422

REACTIONS (6)
  - Back pain [None]
  - Immobile [None]
  - Eye haemorrhage [None]
  - Eye pain [None]
  - Spinal osteoarthritis [None]
  - Myalgia [None]
